FAERS Safety Report 4383105-3 (Version None)
Quarter: 2004Q2

REPORT INFORMATION
  Report Type: 
  Country: None (occurrence: None)
  Receive Date: 20040618
  Receipt Date: 20040326
  Transmission Date: 20050107
  Serious: Yes (Death, Hospitalization)
  Sender: FDA-Public Use
  Company Number: USA-2004-0015620

PATIENT
  Age: 78 Year
  Sex: Female

DRUGS (1)
  1. MORPHINE SULFATE [Suspect]
     Indication: PAIN

REACTIONS (3)
  - OEDEMA PERIPHERAL [None]
  - PARKINSONISM [None]
  - SENSORY DISTURBANCE [None]
